FAERS Safety Report 4468122-7 (Version None)
Quarter: 2004Q4

REPORT INFORMATION
  Report Type: 
  Country: None (occurrence: None)
  Receive Date: 20041004
  Receipt Date: 20040924
  Transmission Date: 20050328
  Serious: Yes (Hospitalization)
  Sender: FDA-Public Use
  Company Number: SUS1-2004-00604

PATIENT
  Age: 8 Year
  Sex: Female
  Weight: 19 kg

DRUGS (1)
  1. ADDERALL 10 [Suspect]
     Dosage: 10 MG,

REACTIONS (9)
  - CONFUSIONAL STATE [None]
  - HALLUCINATION [None]
  - HYPERVENTILATION [None]
  - OVERDOSE [None]
  - PANIC ATTACK [None]
  - RESPIRATORY RATE INCREASED [None]
  - RESTLESSNESS [None]
  - SKIN DISCOLOURATION [None]
  - TREMOR [None]
